FAERS Safety Report 17469393 (Version 1)
Quarter: 2020Q1

REPORT INFORMATION
  Report Type: Spontaneous
  Country: FR (occurrence: FR)
  Receive Date: 20200227
  Receipt Date: 20200227
  Transmission Date: 20200409
  Serious: Yes (Other)
  Sender: FDA-Public Use
  Company Number: FR-MYLANLABS-2020M1021241

PATIENT
  Age: 59 Year
  Sex: Male
  Weight: 76 kg

DRUGS (2)
  1. ETOPOSIDE MYLAN [Suspect]
     Active Substance: ETOPOSIDE
     Indication: GASTRIC CANCER
     Dosage: 188 MILLIGRAM
     Route: 041
     Dates: start: 20191007
  2. CISPLATIN MYLAN [Suspect]
     Active Substance: CISPLATIN
     Indication: GASTRIC CANCER
     Dosage: 188 MILLIGRAM
     Route: 041
     Dates: start: 20191007

REACTIONS (1)
  - Platelet toxicity [Recovered/Resolved]

NARRATIVE: CASE EVENT DATE: 201911
